FAERS Safety Report 12558285 (Version 1)
Quarter: 2016Q3

REPORT INFORMATION
  Report Type: Spontaneous
  Country: JP (occurrence: JP)
  Receive Date: 20160714
  Receipt Date: 20160714
  Transmission Date: 20161109
  Serious: Yes (Other)
  Sender: FDA-Public Use
  Company Number: JP-GILEAD-2016-0222427

PATIENT
  Age: 77 Year
  Sex: Male

DRUGS (2)
  1. SOVALDI [Suspect]
     Active Substance: SOFOSBUVIR
     Indication: HEPATITIS C
     Dosage: 400 MG, QD
     Route: 048
  2. COPEGUS [Concomitant]
     Active Substance: RIBAVIRIN

REACTIONS (3)
  - Headache [Not Recovered/Not Resolved]
  - Deafness [Unknown]
  - Dizziness [Not Recovered/Not Resolved]
